FAERS Safety Report 20694916 (Version 2)
Quarter: 2022Q2

REPORT INFORMATION
  Report Type: Report from Study
  Country: DO (occurrence: DO)
  Receive Date: 20220411
  Receipt Date: 20220512
  Transmission Date: 20220721
  Serious: Yes (Other)
  Sender: FDA-Public Use
  Company Number: DO-JNJFOC-20220129497

PATIENT
  Age: 81 Year
  Sex: Male
  Weight: 74 kg

DRUGS (1)
  1. IMBRUVICA [Suspect]
     Active Substance: IBRUTINIB
     Indication: Chronic lymphocytic leukaemia
     Route: 048
     Dates: start: 20210331

REACTIONS (7)
  - White blood cell count increased [Unknown]
  - Peripheral swelling [Unknown]
  - Hernia [Unknown]
  - Escherichia infection [Unknown]
  - Haemoglobin decreased [Recovering/Resolving]
  - Biopsy prostate [Unknown]
  - Product dose omission issue [Unknown]

NARRATIVE: CASE EVENT DATE: 20220101
